FAERS Safety Report 5907950-5 (Version None)
Quarter: 2008Q4

REPORT INFORMATION
  Report Type: 
  Country: None (occurrence: None)
  Receive Date: 20081003
  Receipt Date: 20080925
  Transmission Date: 20090506
  Serious: Yes (Hospitalization, Other)
  Sender: FDA-Public Use
  Company Number: US-AMGEN-QUU307705

PATIENT
  Sex: Female

DRUGS (9)
  1. ENBREL [Suspect]
     Indication: RHEUMATOID ARTHRITIS
     Route: 058
     Dates: start: 20040801
  2. HYDROCHLOROTHIAZIDE [Concomitant]
  3. SYNTHROID [Concomitant]
  4. FOLIC ACID [Concomitant]
  5. OSCAL [Concomitant]
  6. SYNTHROID [Concomitant]
  7. TYLENOL (CAPLET) [Concomitant]
  8. PREDNISONE [Concomitant]
  9. METHOTREXATE SODIUM [Concomitant]

REACTIONS (16)
  - ARTHRITIS INFECTIVE [None]
  - CHRONIC OBSTRUCTIVE PULMONARY DISEASE [None]
  - DRY EYE [None]
  - EYE INFECTION [None]
  - HYPERTENSION [None]
  - HYPOTHYROIDISM [None]
  - INJECTION SITE IRRITATION [None]
  - INTRACRANIAL ANEURYSM [None]
  - LOCALISED INFECTION [None]
  - LUNG NEOPLASM [None]
  - OCULAR HYPERAEMIA [None]
  - OEDEMA PERIPHERAL [None]
  - PLEURAL EFFUSION [None]
  - PNEUMONIA [None]
  - SCOLIOSIS [None]
  - VISUAL ACUITY REDUCED [None]
